FAERS Safety Report 7339613-6 (Version None)
Quarter: 2011Q1

REPORT INFORMATION
  Report Type: 
  Country: None (occurrence: None)
  Receive Date: 20110308
  Receipt Date: 20110228
  Transmission Date: 20110831
  Serious: Yes (Hospitalization)
  Sender: FDA-Public Use
  Company Number: JP-MERCK-1102USA01126

PATIENT
  Age: 76 Year
  Sex: Female

DRUGS (8)
  1. JANUVIA [Suspect]
     Indication: TYPE 2 DIABETES MELLITUS
     Route: 048
     Dates: start: 20100526, end: 20101201
  2. NORVASC [Concomitant]
     Route: 065
     Dates: start: 20010824
  3. MEBLIN [Concomitant]
     Route: 065
     Dates: start: 20091017, end: 20101027
  4. AVAPRO [Suspect]
     Route: 048
     Dates: start: 20100404, end: 20101001
  5. AVAPRO [Suspect]
     Route: 048
     Dates: start: 20100320, end: 20100403
  6. GLUFAST [Concomitant]
     Route: 065
     Dates: start: 20051125
  7. JANUVIA [Suspect]
     Route: 048
     Dates: start: 20101201
  8. AVAPRO [Suspect]
     Route: 048
     Dates: start: 20101003

REACTIONS (2)
  - CHOLECYSTITIS [None]
  - BILE DUCT STONE [None]
